FAERS Safety Report 9328646 (Version 1)
Quarter: 2013Q2

REPORT INFORMATION
  Report Type: Spontaneous
  Country: US (occurrence: US)
  Receive Date: 20130604
  Receipt Date: 20130604
  Transmission Date: 20140414
  Serious: Yes (Other)
  Sender: FDA-Public Use
  Company Number: US-SANOFI-AVENTIS-2013SA008960

PATIENT
  Age: 50 Year
  Sex: Female

DRUGS (6)
  1. LANTUS SOLOSTAR [Suspect]
     Dosage: DOSE:35 UNIT(S)
     Route: 051
     Dates: start: 2005
  2. SOLOSTAR [Suspect]
     Dates: start: 2005
  3. APIDRA SOLOSTAR [Suspect]
     Dosage: 10-11 UNITS
     Route: 058
  4. APIDRA SOLOSTAR [Suspect]
     Dosage: DOSE:12 UNIT(S)
     Route: 058
     Dates: start: 20130128
  5. APIDRA SOLOSTAR [Suspect]
  6. SOLOSTAR [Suspect]

REACTIONS (7)
  - Hypoglycaemia [Unknown]
  - Vomiting [Unknown]
  - Dizziness [Unknown]
  - Wrong drug administered [Unknown]
  - Hyperglycaemia [Recovered/Resolved]
  - Blood glucose decreased [Unknown]
  - Blood glucose increased [Recovered/Resolved]
